FAERS Safety Report 18580279 (Version 1)
Quarter: 2020Q4

REPORT INFORMATION
  Report Type: Report from Study
  Country: FR (occurrence: FR)
  Receive Date: 20201204
  Receipt Date: 20201204
  Transmission Date: 20210114
  Serious: Yes (Death)
  Sender: FDA-Public Use
  Company Number: FR-PFIZER INC-2020471072

PATIENT
  Sex: Male

DRUGS (4)
  1. CLINDAMYCIN. [Suspect]
     Active Substance: CLINDAMYCIN
     Indication: SEPTIC ARTHRITIS STAPHYLOCOCCAL
  2. RIFAMPICIN [Suspect]
     Active Substance: RIFAMPIN
     Indication: STAPHYLOCOCCAL OSTEOMYELITIS
     Dosage: 600 MG, 2X/DAY
     Route: 048
  3. CLINDAMYCIN. [Suspect]
     Active Substance: CLINDAMYCIN
     Indication: STAPHYLOCOCCAL OSTEOMYELITIS
     Dosage: 600 MG
     Route: 048
  4. RIFAMPICIN [Suspect]
     Active Substance: RIFAMPIN
     Indication: SEPTIC ARTHRITIS STAPHYLOCOCCAL

REACTIONS (2)
  - Drug ineffective [Fatal]
  - Toxic skin eruption [Fatal]
